FAERS Safety Report 12930798 (Version 2)
Quarter: 2016Q4

REPORT INFORMATION
  Report Type: Spontaneous
  Country: UA (occurrence: UA)
  Receive Date: 20161110
  Receipt Date: 20161119
  Transmission Date: 20170207
  Serious: Yes (Other)
  Sender: FDA-Public Use
  Company Number: UA-ASTRAZENECA-2016SF16623

PATIENT
  Age: 60 Year
  Sex: Female
  Weight: 80 kg

DRUGS (12)
  1. BRILINTA [Suspect]
     Active Substance: TICAGRELOR
     Indication: MYOCARDIAL INFARCTION
     Route: 048
     Dates: start: 20161018, end: 20161019
  2. BRILINTA [Suspect]
     Active Substance: TICAGRELOR
     Indication: ACUTE CORONARY SYNDROME
     Route: 048
     Dates: start: 20161026, end: 20161027
  3. BRILINTA [Suspect]
     Active Substance: TICAGRELOR
     Indication: MYOCARDIAL INFARCTION
     Route: 048
     Dates: start: 20161026, end: 20161027
  4. BRILINTA [Suspect]
     Active Substance: TICAGRELOR
     Indication: ACUTE CORONARY SYNDROME
     Route: 048
     Dates: start: 20161018, end: 20161019
  5. PLAVIX [Concomitant]
     Active Substance: CLOPIDOGREL BISULFATE
     Indication: ACUTE CORONARY SYNDROME
  6. PLAVIX [Concomitant]
     Active Substance: CLOPIDOGREL BISULFATE
     Indication: STENT PLACEMENT
  7. HEPARIN [Concomitant]
     Active Substance: HEPARIN SODIUM
     Indication: STENT PLACEMENT
     Dosage: 10000 UNITS
  8. ASPIRIN. [Concomitant]
     Active Substance: ASPIRIN
     Indication: STENT PLACEMENT
     Dosage: 100MG
  9. HEPARIN [Concomitant]
     Active Substance: HEPARIN SODIUM
     Indication: ACUTE CORONARY SYNDROME
     Dosage: 10000 UNITS
  10. TROMBONET [Concomitant]
     Indication: STENT PLACEMENT
     Dosage: 300 MG
  11. ASPIRIN. [Concomitant]
     Active Substance: ASPIRIN
     Indication: ACUTE CORONARY SYNDROME
     Dosage: 100MG
  12. TROMBONET [Concomitant]
     Indication: ACUTE CORONARY SYNDROME
     Dosage: 300 MG

REACTIONS (6)
  - Erythema [Unknown]
  - Dyspnoea [Unknown]
  - Hypersensitivity [Unknown]
  - Purpura [Unknown]
  - Swelling [Unknown]
  - Pruritus [Unknown]

NARRATIVE: CASE EVENT DATE: 20161018
